FAERS Safety Report 4797171-4 (Version None)
Quarter: 2005Q3

REPORT INFORMATION
  Report Type: 
  Country: None (occurrence: None)
  Receive Date: 20050916
  Receipt Date: 20050418
  Transmission Date: 20060218
  Serious: Yes (Other)
  Sender: FDA-Public Use
  Company Number: US-JNJFOC-20050404946

PATIENT
  Age: 62 Year
  Sex: Female

DRUGS (3)
  1. TOPAMAX [Suspect]
     Indication: MIGRAINE
     Dosage: 50 MG, 2 IN 1 DAY, ORAL AS NEEDED
     Route: 048
     Dates: start: 20050414, end: 20050415
  2. IMITREX [Concomitant]
  3. HORMONE REPLACEMENT THERAPY (ANDROGENS AND FEMALE SEX HORMONES IN COMB [Concomitant]

REACTIONS (3)
  - AMNESIA [None]
  - BLOOD PRESSURE INCREASED [None]
  - DYSARTHRIA [None]
